FAERS Safety Report 21924587 (Version 2)
Quarter: 2023Q1

REPORT INFORMATION
  Report Type: Report from Study
  Country: ES (occurrence: ES)
  Receive Date: 20230130
  Receipt Date: 20230201
  Transmission Date: 20230418
  Serious: Yes (Other)
  Sender: FDA-Public Use
  Company Number: ES-SUN PHARMACEUTICAL INDUSTRIES LTD-2023RR-375661

PATIENT

DRUGS (1)
  1. MORPHINE [Suspect]
     Active Substance: MORPHINE
     Indication: Acute pulmonary oedema
     Dosage: 2- TO 4-MG DOSES TO A MAXIMUM OF 8 MG
     Route: 042

REACTIONS (1)
  - Adverse event [Unknown]
